FAERS Safety Report 25633068 (Version 1)
Quarter: 2025Q3

REPORT INFORMATION
  Report Type: Spontaneous
  Country: JP (occurrence: JP)
  Receive Date: 20250801
  Receipt Date: 20250801
  Transmission Date: 20251020
  Serious: Yes (Other)
  Sender: ROCHE
  Company Number: JP-CHUGAI-2025024090

PATIENT
  Age: 2 Decade
  Sex: Female

DRUGS (3)
  1. ACTEMRA [Suspect]
     Active Substance: TOCILIZUMAB
     Indication: Product used for unknown indication
     Route: 058
  2. PREDONINE [Concomitant]
     Active Substance: PREDNISOLONE
     Route: 050
  3. ALLOID G [Concomitant]
     Active Substance: SODIUM ALGINATE
     Route: 050

REACTIONS (2)
  - Haemophagocytic lymphohistiocytosis [Unknown]
  - Disseminated intravascular coagulation [Unknown]
